FAERS Safety Report 7383162-6 (Version None)
Quarter: 2011Q1

REPORT INFORMATION
  Report Type: 
  Country: None (occurrence: None)
  Receive Date: 20110325
  Receipt Date: 20110325
  Transmission Date: 20110831
  Serious: Yes (Death, Hospitalization)
  Sender: FDA-Public Use
  Company Number: None

PATIENT
  Age: 78 Year
  Sex: Male
  Weight: 104.6 kg

DRUGS (9)
  1. TAXOTERE [Suspect]
     Indication: CHEMOTHERAPY
  2. ASPIRIN [Concomitant]
  3. SIMVASTATIN [Concomitant]
  4. HYDROCODONE BITARTRATE AND ACETAMINOPHEN [Concomitant]
  5. PREDNISONE TAPER [Concomitant]
  6. ALBUTEROL [Concomitant]
  7. ASMANEX TWISTHALER [Concomitant]
  8. MUCINEX [Concomitant]
  9. FORADIL [Concomitant]

REACTIONS (5)
  - THROMBOCYTOPENIA [None]
  - HAEMOPTYSIS [None]
  - ANAEMIA [None]
  - RESPIRATORY FAILURE [None]
  - PULMONARY TOXICITY [None]
